FAERS Safety Report 25838010 (Version 1)
Quarter: 2025Q3

REPORT INFORMATION
  Report Type: Spontaneous
  Country: EU (occurrence: EU)
  Receive Date: 20250923
  Receipt Date: 20250923
  Transmission Date: 20251020
  Serious: Yes (Other)
  Sender: IDORSIA PHARMACEUTICALS
  Company Number: EU-IDORSIA-011814-2025-DE

PATIENT
  Sex: Male

DRUGS (2)
  1. QUVIVIQ [Suspect]
     Active Substance: DARIDOREXANT
     Indication: Insomnia
     Route: 048
  2. QUVIVIQ [Suspect]
     Active Substance: DARIDOREXANT
     Route: 048

REACTIONS (3)
  - Acute hepatic failure [Recovered/Resolved]
  - Hepatic enzyme increased [Recovered/Resolved]
  - Intentional overdose [Recovered/Resolved]
